FAERS Safety Report 10935057 (Version 2)
Quarter: 2015Q2

REPORT INFORMATION
  Report Type: Spontaneous
  Country: IN (occurrence: IN)
  Receive Date: 20150320
  Receipt Date: 20150401
  Transmission Date: 20150821
  Serious: Yes (Life-Threatening)
  Sender: FDA-Public Use
  Company Number: IN-MERCK-1501IND003647

PATIENT
  Age: 54 Year
  Sex: Female
  Weight: 74 kg

DRUGS (2)
  1. JANUVIA [Suspect]
     Active Substance: SITAGLIPTIN PHOSPHATE
     Dosage: 50 MG, QD
     Route: 048
     Dates: start: 20150111, end: 2015
  2. JANUVIA [Suspect]
     Active Substance: SITAGLIPTIN PHOSPHATE
     Indication: TYPE 2 DIABETES MELLITUS
     Dosage: 50 MG, QD
     Route: 048
     Dates: start: 20150102, end: 20150109

REACTIONS (7)
  - Ataxia [Recovered/Resolved]
  - Disorientation [Recovered/Resolved]
  - Vertigo positional [Recovered/Resolved]
  - Disorientation [Recovered/Resolved]
  - Ataxia [Recovered/Resolved]
  - Hyperhidrosis [Recovered/Resolved]
  - Hyperhidrosis [Recovered/Resolved]

NARRATIVE: CASE EVENT DATE: 2015
